FAERS Safety Report 4762685-X (Version None)
Quarter: 2005Q3

REPORT INFORMATION
  Report Type: 
  Country: None (occurrence: None)
  Receive Date: 20050826
  Receipt Date: 20041027
  Transmission Date: 20060218
  Serious: Yes (Other)
  Sender: FDA-Public Use
  Company Number: USA-2004-0017397

PATIENT
  Sex: Male

DRUGS (2)
  1. OXYCONTIN [Suspect]
     Indication: PAIN
     Dosage: 80 MG, Q12H
  2. OXYCODONE HCL [Suspect]
     Indication: PAIN
     Dosage: 4 TABLET, DAILY,

REACTIONS (6)
  - ANXIETY [None]
  - DIARRHOEA [None]
  - DRUG DEPENDENCE [None]
  - DRUG SCREEN NEGATIVE [None]
  - DRUG WITHDRAWAL SYNDROME [None]
  - NAUSEA [None]
